FAERS Safety Report 4943522-7 (Version None)
Quarter: 2006Q1

REPORT INFORMATION
  Report Type: 
  Country: None (occurrence: None)
  Receive Date: 20060314
  Receipt Date: 20060308
  Transmission Date: 20060701
  Serious: Yes (Death, Other)
  Sender: FDA-Public Use
  Company Number: US-JNJFOC-20060302266

PATIENT
  Age: 78 Year
  Sex: Male

DRUGS (8)
  1. LEVAQUIN [Suspect]
     Route: 048
  2. CIPROFLOXACIN [Suspect]
     Indication: SKIN INFECTION
  3. MACRODANTIN [Concomitant]
  4. IRON [Concomitant]
  5. DEMEROL [Concomitant]
  6. VICODIN [Concomitant]
  7. VICODIN [Concomitant]
  8. LASIX [Concomitant]

REACTIONS (1)
  - CLOSTRIDIAL INFECTION [None]
